FAERS Safety Report 21735651 (Version 1)
Quarter: 2022Q4

REPORT INFORMATION
  Report Type: Spontaneous
  Country: US (occurrence: US)
  Receive Date: 20221215
  Receipt Date: 20221215
  Transmission Date: 20230112
  Serious: No
  Sender: FDA-Public Use
  Company Number: USA--2022-US-000948

PATIENT
  Sex: Male

DRUGS (4)
  1. BRIMONIDINE TARTRATE [Suspect]
     Active Substance: BRIMONIDINE TARTRATE
     Dosage: 1 DROP EACH EYE ONCE PER DAY
     Dates: start: 20221111, end: 20221112
  2. PREDNISOLONE [Concomitant]
     Active Substance: PREDNISOLONE
     Dosage: 2 DROPS EACH EYE ONCE PER DAY
  3. LATANOPROST [Concomitant]
     Active Substance: LATANOPROST
     Dosage: 1 DROP EACH EYE ONCE PER DAY
  4. ELIQUIS [Concomitant]
     Active Substance: APIXABAN
     Dosage: 1 TABLET ONCE PER DAY
     Route: 048

REACTIONS (1)
  - Vision blurred [Recovered/Resolved]

NARRATIVE: CASE EVENT DATE: 20221111
